FAERS Safety Report 12712088 (Version 1)
Quarter: 2016Q3

REPORT INFORMATION
  Report Type: Spontaneous
  Country: US (occurrence: US)
  Receive Date: 20160902
  Receipt Date: 20160902
  Transmission Date: 20161109
  Serious: No
  Sender: FDA-Public Use
  Company Number: US-BAYER-2016-171192

PATIENT
  Age: 84 Year
  Sex: Male
  Weight: 77.98 kg

DRUGS (1)
  1. MIRALAX [Suspect]
     Active Substance: POLYETHYLENE GLYCOL 3350
     Indication: GASTROINTESTINAL DISORDER
     Dosage: 0.75 DF, UNK
     Route: 048
     Dates: start: 201608

REACTIONS (3)
  - Product use issue [None]
  - Diarrhoea [Recovered/Resolved]
  - Faeces soft [Recovered/Resolved]
